FAERS Safety Report 5636373-1 (Version None)
Quarter: 2008Q1

REPORT INFORMATION
  Report Type: 
  Country: None (occurrence: None)
  Receive Date: 20080225
  Receipt Date: 20071113
  Transmission Date: 20080703
  Serious: Yes (Other)
  Sender: FDA-Public Use
  Company Number: A0691015A

PATIENT
  Age: 66 Year
  Sex: Male
  Weight: 94.1 kg

DRUGS (3)
  1. VERAMYST [Suspect]
     Dosage: 2SPR PER DAY
     Route: 045
     Dates: start: 20070830
  2. ACIPHEX [Concomitant]
  3. ZYRTEC [Concomitant]
     Route: 048
     Dates: start: 20070830

REACTIONS (1)
  - GLAUCOMA [None]
